FAERS Safety Report 19479383 (Version 1)
Quarter: 2021Q2

REPORT INFORMATION
  Report Type: Spontaneous
  Country: IT (occurrence: IT)
  Receive Date: 20210630
  Receipt Date: 20210630
  Transmission Date: 20210717
  Serious: Yes (Other)
  Sender: FDA-Public Use
  Company Number: IT-SEATTLE GENETICS-2018SGN00087

PATIENT
  Age: 21 Year
  Sex: Male

DRUGS (1)
  1. ADCETRIS [Suspect]
     Active Substance: BRENTUXIMAB VEDOTIN
     Indication: CUTANEOUS T-CELL LYMPHOMA
     Dosage: 1.8 MG/KG, Q3WEEKS
     Route: 065

REACTIONS (3)
  - Platelet count abnormal [Recovered/Resolved]
  - Dermatitis exfoliative generalised [Recovered/Resolved]
  - Off label use [Unknown]
